FAERS Safety Report 9490578 (Version 1)
Quarter: 2013Q3

REPORT INFORMATION
  Report Type: Spontaneous
  Country: AU (occurrence: None)
  Receive Date: 20130826
  Receipt Date: 20130826
  Transmission Date: 20140515
  Serious: Yes (Hospitalization, Congenital Anomaly)
  Sender: FDA-Public Use
  Company Number: 150488

PATIENT
  Sex: Female

DRUGS (1)
  1. MIDAZOLAM HCL [Suspect]
     Dosage: 5-15 MG PER HOUR

REACTIONS (7)
  - Urinary bladder rupture [None]
  - Ascites [None]
  - Urinary retention [None]
  - Foetal exposure during pregnancy [None]
  - Caesarean section [None]
  - Respiratory distress [None]
  - Blood sodium decreased [None]
